FAERS Safety Report 5179767-3 (Version None)
Quarter: 2006Q4

REPORT INFORMATION
  Report Type: 
  Country: None (occurrence: None)
  Receive Date: 20061212
  Receipt Date: 20061129
  Transmission Date: 20070319
  Serious: Yes (Death)
  Sender: FDA-Public Use
  Company Number: 2006143271

PATIENT
  Age: 9 Year
  Sex: Male
  Weight: 32 kg

DRUGS (4)
  1. ZYVOX [Suspect]
     Indication: ENTEROCOCCAL INFECTION
     Dosage: 600 MG (600 MG, 1 IN 1 D), ORAL
     Route: 048
     Dates: start: 20060823, end: 20060902
  2. AMIKACIN [Concomitant]
  3. METRONIDAZOLE [Concomitant]
  4. PIPERACILLIN [Concomitant]

REACTIONS (1)
  - SEPTIC SHOCK [None]
